FAERS Safety Report 7860004-3 (Version None)
Quarter: 2011Q4

REPORT INFORMATION
  Report Type: 
  Country: None (occurrence: None)
  Receive Date: 20111025
  Receipt Date: 20110922
  Transmission Date: 20120403
  Serious: No
  Sender: FDA-Public Use
  Company Number: NPIL/SEV/H/2011/32

PATIENT
  Age: 40 Year
  Sex: Female

DRUGS (1)
  1. SEVOFLURANE [Suspect]
     Indication: ANAESTHESIA
     Dosage: 3%, INHALATION
     Route: 055
     Dates: start: 20110919

REACTIONS (1)
  - DRUG INEFFECTIVE [None]
